FAERS Safety Report 5823890-4 (Version None)
Quarter: 2008Q3

REPORT INFORMATION
  Report Type: 
  Country: None (occurrence: None)
  Receive Date: 20080724
  Receipt Date: 20080717
  Transmission Date: 20090109
  Serious: Yes (Other)
  Sender: FDA-Public Use
  Company Number: 2008018870

PATIENT
  Sex: Male
  Weight: 55.3388 kg

DRUGS (1)
  1. ZYRTEC [Suspect]
     Indication: HYPERSENSITIVITY
     Dosage: 1 A DAY (1 IN 1 D), ORAL
     Route: 048
     Dates: start: 20040101, end: 20070101

REACTIONS (1)
  - MUSCLE TWITCHING [None]
